FAERS Safety Report 6903327-4 (Version None)
Quarter: 2010Q3

REPORT INFORMATION
  Report Type: 
  Country: None (occurrence: None)
  Receive Date: 20100803
  Receipt Date: 20080917
  Transmission Date: 20110219
  Serious: No
  Sender: FDA-Public Use
  Company Number: US-PFIZER INC-2008065834

PATIENT
  Sex: Female
  Weight: 73.48 kg

DRUGS (1)
  1. LYRICA [Suspect]
     Indication: POST HERPETIC NEURALGIA
     Dates: start: 20080729, end: 20080731

REACTIONS (2)
  - DRUG INEFFECTIVE [None]
  - PAIN [None]
